FAERS Safety Report 10230786 (Version 1)
Quarter: 2014Q2

REPORT INFORMATION
  Report Type: Spontaneous
  Country: US (occurrence: None)
  Receive Date: 20140610
  Receipt Date: 20140610
  Transmission Date: 20141212
  Serious: Yes (Hospitalization)
  Sender: FDA-Public Use
  Company Number: None

PATIENT
  Age: 62 Year
  Sex: Male
  Weight: 62.1 kg

DRUGS (2)
  1. CARBOPLATIN [Suspect]
     Dates: end: 20140130
  2. DOCETAXEL (TAXOTERE) [Suspect]
     Dates: end: 20140130

REACTIONS (4)
  - Hypoxia [None]
  - Pneumonia [None]
  - White blood cell count increased [None]
  - VIIth nerve paralysis [None]
